FAERS Safety Report 7237238-4 (Version None)
Quarter: 2011Q1

REPORT INFORMATION
  Report Type: 
  Country: None (occurrence: None)
  Receive Date: 20110121
  Receipt Date: 20110111
  Transmission Date: 20110831
  Serious: Yes (Other)
  Sender: FDA-Public Use
  Company Number: CN-ASTELLAS-2011JP000086

PATIENT
  Sex: Male

DRUGS (4)
  1. DRUG FOR PROMOTION OF TRYPSIN SECRETION [Concomitant]
     Route: 065
  2. PROGRAF [Suspect]
     Dosage: 4 MG, UNKNOWN/D
     Route: 048
  3. PROGRAF [Suspect]
     Indication: RENAL TRANSPLANT
     Dosage: 3 MG, UNKNOWN/D
     Route: 048
  4. PROGRAF [Suspect]
     Dosage: 3.5 MG, UNKNOWN/D
     Route: 048
     Dates: start: 20100401

REACTIONS (6)
  - IMMUNOSUPPRESSANT DRUG LEVEL DECREASED [None]
  - DARK CIRCLES UNDER EYES [None]
  - REFLUX OESOPHAGITIS [None]
  - ABDOMINAL DISTENSION [None]
  - LIVER DISORDER [None]
  - MELANODERMIA [None]
